FAERS Safety Report 11798430 (Version 1)
Quarter: 2015Q4

REPORT INFORMATION
  Report Type: Spontaneous
  Country: GB (occurrence: GB)
  Receive Date: 20151203
  Receipt Date: 20151203
  Transmission Date: 20160305
  Serious: Yes (Other)
  Sender: FDA-Public Use
  Company Number: GB-GLAXOSMITHKLINE-GB2015171375

PATIENT
  Age: 73 Year
  Sex: Male

DRUGS (8)
  1. LAXIDO [Concomitant]
     Active Substance: POLYETHYLENE GLYCOL 3350\POTASSIUM CHLORIDE\SODIUM BICARBONATE\SODIUM CHLORIDE
     Dosage: AS DIRECTED
     Route: 048
  2. ASPIRIN. [Concomitant]
     Active Substance: ASPIRIN
     Dosage: 75 MG, QD
     Route: 048
  3. ATORVASTATIN [Concomitant]
     Active Substance: ATORVASTATIN
     Dosage: 10 MG, QD
     Route: 048
  4. DUTASTERIDE. [Suspect]
     Active Substance: DUTASTERIDE
     Indication: BENIGN PROSTATIC HYPERPLASIA
     Dosage: 500 ?G, QD
     Route: 048
     Dates: start: 20060617, end: 20150930
  5. HUMULIN S [Concomitant]
     Dosage: USE AS DIRECTED. 100UNITS/ML SOLUTION FOR INJECTION 10ML VIALS
     Route: 058
  6. FUROSEMIDE. [Concomitant]
     Active Substance: FUROSEMIDE
     Dosage: MORNING
     Route: 048
  7. HUMULIN I [Concomitant]
     Active Substance: INSULIN HUMAN
     Dosage: USE AS DIRECTED. 100UNITS/ML SUSPENSION FOR INJECTION 10ML VIALS
     Route: 058
  8. OMEPRAZOLE. [Concomitant]
     Active Substance: OMEPRAZOLE
     Dosage: 20 MG, BID
     Route: 048

REACTIONS (2)
  - Sex hormone binding globulin increased [Unknown]
  - Blood testosterone increased [Not Recovered/Not Resolved]

NARRATIVE: CASE EVENT DATE: 20150202
